FAERS Safety Report 22311857 (Version 1)
Quarter: 2023Q2

REPORT INFORMATION
  Report Type: Spontaneous
  Country: US (occurrence: US)
  Receive Date: 20230512
  Receipt Date: 20230512
  Transmission Date: 20230721
  Serious: Yes (Death, Hospitalization, Other)
  Sender: FDA-Public Use
  Company Number: US-MACLEODS PHARMACEUTICALS US LTD-MAC2023041207

PATIENT

DRUGS (8)
  1. OLANZAPINE [Suspect]
     Active Substance: OLANZAPINE
     Indication: Bipolar disorder
     Dosage: 5 MILLIGRAM, PRN
     Route: 065
     Dates: start: 2020, end: 2020
  2. OLANZAPINE [Suspect]
     Active Substance: OLANZAPINE
     Dosage: 20 MILLIGRAM, QD
     Route: 065
     Dates: start: 201912, end: 2020
  3. AVAPRITINIB [Suspect]
     Active Substance: AVAPRITINIB
     Indication: Gastrointestinal cancer metastatic
     Dosage: 300 MILLIGRAM, QD
     Route: 065
     Dates: start: 202003, end: 2020
  4. AVAPRITINIB [Suspect]
     Active Substance: AVAPRITINIB
     Indication: Gastrointestinal stromal tumour
  5. DASATINIB [Concomitant]
     Active Substance: DASATINIB
     Indication: Gastrointestinal stromal tumour
     Dosage: UNK (STOP DATE:MAR 2020)
     Route: 065
  6. DASATINIB [Concomitant]
     Active Substance: DASATINIB
     Indication: Gastrointestinal cancer metastatic
  7. HALOPERIDOL [Concomitant]
     Active Substance: HALOPERIDOL
     Indication: Agitation
     Dosage: 2 MILLIGRAM
     Route: 065
  8. HALOPERIDOL [Concomitant]
     Active Substance: HALOPERIDOL
     Dosage: 1 MILLIGRAM (ON DAY 7 OF HOSPITALIZATION)
     Route: 042

REACTIONS (5)
  - Death [Fatal]
  - Parkinsonism [Unknown]
  - Encephalopathy [Unknown]
  - Dysphagia [Unknown]
  - Salivary hypersecretion [Unknown]

NARRATIVE: CASE EVENT DATE: 20200101
